FAERS Safety Report 13430136 (Version 1)
Quarter: 2017Q2

REPORT INFORMATION
  Report Type: Spontaneous
  Country: US (occurrence: US)
  Receive Date: 20170412
  Receipt Date: 20170412
  Transmission Date: 20170830
  Serious: Yes (Hospitalization)
  Sender: FDA-Public Use
  Company Number: US-BION-006172

PATIENT
  Sex: Male

DRUGS (1)
  1. CALCITRIOL CAPSULES 0.25 MCG [Suspect]
     Active Substance: CALCITRIOL
     Indication: PRODUCT USED FOR UNKNOWN INDICATION
     Dosage: STRENGTH: 0.25 MCG, PATIENT WAS ON 11 CAPSULES OF THE PRODUCT

REACTIONS (2)
  - Incorrect dose administered [Not Recovered/Not Resolved]
  - Overdose [Unknown]
